FAERS Safety Report 9683250 (Version 1)
Quarter: 2013Q4

REPORT INFORMATION
  Report Type: Spontaneous
  Country: US (occurrence: None)
  Receive Date: 20131111
  Receipt Date: 20131111
  Transmission Date: 20140711
  Serious: Yes (Hospitalization)
  Sender: FDA-Public Use
  Company Number: None

PATIENT
  Age: 2 Year
  Sex: Male
  Weight: 11.79 kg

DRUGS (1)
  1. ETHER [Suspect]
     Indication: CONVULSION

REACTIONS (11)
  - Vomiting [None]
  - Lethargy [None]
  - Muscular weakness [None]
  - Contusion [None]
  - Tremor [None]
  - Mitochondrial cytopathy [None]
  - Convulsion [None]
  - Cerebellar ataxia [None]
  - Dizziness [None]
  - Headache [None]
  - Hypotension [None]
